FAERS Safety Report 20455764 (Version 1)
Quarter: 2022Q1

REPORT INFORMATION
  Report Type: Spontaneous
  Country: US (occurrence: US)
  Receive Date: 20220210
  Receipt Date: 20220210
  Transmission Date: 20220423
  Serious: Yes (Hospitalization)
  Sender: FDA-Public Use
  Company Number: US-MYLANLABS-2022M1011219

PATIENT
  Age: 39 Year
  Sex: Female

DRUGS (7)
  1. ESTRADIOL [Suspect]
     Active Substance: ESTRADIOL
     Indication: In vitro fertilisation
     Dosage: 0.1 MILLIGRAM, QD, DERMAL
     Route: 062
  2. GONAL-F [Suspect]
     Active Substance: FOLLITROPIN
     Indication: Ovulation induction
     Dosage: 150 INTERNATIONAL UNIT
     Route: 065
  3. MENOPUR [Suspect]
     Active Substance: FOLLITROPIN\LUTEINIZING HORMONE
     Indication: Ovulation induction
     Dosage: 150 INTERNATIONAL UNIT
     Route: 065
  4. CETROTIDE [Suspect]
     Active Substance: CETRORELIX ACETATE
     Indication: Ovulation induction
     Dosage: 250 MICROGRAM, TREATMENT INITIATED ON DAY 5
     Route: 065
  5. LUPRON [Suspect]
     Active Substance: LEUPROLIDE ACETATE
     Indication: Ovulation induction
     Dosage: 1 MILLIGRAM,TRIGGER SHOT ON DAY 10
     Route: 065
  6. ESTRACE [Suspect]
     Active Substance: ESTRADIOL
     Indication: In vitro fertilisation
     Dosage: 2 MILLIGRAM, TID, THREE TIMES A DAY
     Route: 048
  7. ENDOMETRIN [Suspect]
     Active Substance: PROGESTERONE
     Indication: In vitro fertilisation
     Dosage: 100 MILLIGRAM, TID, THREE TIMES A DAY
     Route: 067

REACTIONS (2)
  - Myelin oligodendrocyte glycoprotein antibody-associated disease [Recovering/Resolving]
  - Optic neuritis [Recovering/Resolving]
